FAERS Safety Report 9248174 (Version 1)
Quarter: 2013Q2

REPORT INFORMATION
  Report Type: Spontaneous
  Country: US (occurrence: None)
  Receive Date: 20130419
  Receipt Date: 20130419
  Transmission Date: 20140414
  Serious: Yes (Hospitalization)
  Sender: FDA-Public Use
  Company Number: None

PATIENT
  Age: 67 Year
  Sex: Male
  Weight: 81.5 kg

DRUGS (5)
  1. RAPAMYCIN [Suspect]
  2. RITUXIMAB (MOAB C2B8 ANTI CD20, CHIMERIC) [Suspect]
  3. BUSULFAN [Suspect]
     Dosage: 264 MG
  4. FLUDARABINE PHOSPHATE [Suspect]
     Dosage: 244 MG
  5. METHOTREXATE [Suspect]

REACTIONS (11)
  - Pyrexia [None]
  - Loss of consciousness [None]
  - Cerebral haemorrhage [None]
  - Subarachnoid haemorrhage [None]
  - Brain oedema [None]
  - Thrombocytopenia [None]
  - Contusion [None]
  - Hypertension [None]
  - Anaemia [None]
  - Leukopenia [None]
  - Hypotension [None]
